FAERS Safety Report 5879839-1 (Version None)
Quarter: 2008Q3

REPORT INFORMATION
  Report Type: 
  Country: None (occurrence: None)
  Receive Date: 20080911
  Receipt Date: 20080911
  Transmission Date: 20090109
  Serious: No
  Sender: FDA-Public Use
  Company Number: None

PATIENT
  Age: 72 Year
  Sex: Female
  Weight: 92.9874 kg

DRUGS (2)
  1. CARDURA [Suspect]
     Indication: HYPERTENSION
     Dosage: 1 TABLET 8 MG. 1X A DAY BY MOUTH AT BEDTIME
     Route: 048
     Dates: start: 20070101, end: 20080501
  2. HYDRALAZINE HCL [Suspect]
     Indication: HYPERTENSION
     Dosage: 1 TABLET 50MG 2X A DAY BY MOUTH
     Route: 048
     Dates: start: 20080501, end: 20080701

REACTIONS (1)
  - URINARY INCONTINENCE [None]
